FAERS Safety Report 25324196 (Version 2)
Quarter: 2025Q2

REPORT INFORMATION
  Report Type: Report from Study
  Country: GB (occurrence: GB)
  Receive Date: 20250516
  Receipt Date: 20250522
  Transmission Date: 20250717
  Serious: Yes (Disabling)
  Sender: TEVA
  Company Number: GB-TEVA-VS-3330100

PATIENT
  Age: 31 Year
  Sex: Female

DRUGS (2)
  1. AJOVY [Suspect]
     Active Substance: FREMANEZUMAB-VFRM
     Indication: Migraine
     Dosage: 225MG/1.5ML PFP 3, LAST ADMINISTERED DATE: UNKNOWN
     Route: 058
  2. AJOVY [Suspect]
     Active Substance: FREMANEZUMAB-VFRM
     Indication: Migraine

REACTIONS (5)
  - Disability [Unknown]
  - Product supply issue [Unknown]
  - Migraine [Unknown]
  - Impaired work ability [Unknown]
  - Bedridden [Unknown]

NARRATIVE: CASE EVENT DATE: 20250501
